FAERS Safety Report 9290101 (Version 1)
Quarter: 2013Q2

REPORT INFORMATION
  Report Type: Spontaneous
  Country: FR (occurrence: FR)
  Receive Date: 20130515
  Receipt Date: 20130515
  Transmission Date: 20140414
  Serious: Yes (Death, Other)
  Sender: FDA-Public Use
  Company Number: PHHY2013FR048022

PATIENT
  Sex: 0

DRUGS (1)
  1. EVEROLIMUS [Suspect]
     Indication: METASTATIC RENAL CELL CARCINOMA
     Dosage: 1 DF, UNK
     Dates: start: 201009, end: 201103

REACTIONS (5)
  - Death [Fatal]
  - Generalised oedema [Unknown]
  - Anaemia [Unknown]
  - Metastases to bone [Unknown]
  - Malignant neoplasm progression [Unknown]
